FAERS Safety Report 10622903 (Version 2)
Quarter: 2014Q4

REPORT INFORMATION
  Report Type: Spontaneous
  Country: US (occurrence: US)
  Receive Date: 20141203
  Receipt Date: 20141231
  Transmission Date: 20150529
  Serious: Yes (Other)
  Sender: FDA-Public Use
  Company Number: US-BAYER-2014-175032

PATIENT
  Age: 70 Year
  Sex: Female

DRUGS (6)
  1. NEURONTIN [Concomitant]
     Active Substance: GABAPENTIN
  2. NORMAL SALINE [Concomitant]
     Active Substance: SODIUM CHLORIDE
  3. CIPRO [Suspect]
     Active Substance: CIPROFLOXACIN HYDROCHLORIDE
     Dosage: 500 MG, BID
     Dates: start: 20141118
  4. POLYPEPTIDES [Suspect]
     Active Substance: POLYPEPTIDES
     Indication: SHORT-BOWEL SYNDROME
     Dosage: .29 ML, QD
     Route: 058
     Dates: start: 20141114, end: 20141121
  5. PEPCID [Concomitant]
     Active Substance: FAMOTIDINE
  6. TPN [Concomitant]
     Active Substance: AMINO ACIDS\DEXTROSE\ELECTROLYTES NOS\SOYBEAN OIL
     Dosage: 150 ML PER HOUR
     Route: 051

REACTIONS (2)
  - Wound secretion [None]
  - Wound infection [None]

NARRATIVE: CASE EVENT DATE: 20141121
